FAERS Safety Report 7458484-0 (Version None)
Quarter: 2011Q2

REPORT INFORMATION
  Report Type: 
  Country: None (occurrence: None)
  Receive Date: 20110503
  Receipt Date: 20110503
  Transmission Date: 20111010
  Serious: Yes (Other)
  Sender: FDA-Public Use
  Company Number: None

PATIENT
  Age: 38 Year
  Sex: Female

DRUGS (1)
  1. VANCOMYCIN [Suspect]
     Indication: WOUND DEHISCENCE
     Dosage: ONCE IV
     Route: 042
     Dates: start: 20110116, end: 20110116

REACTIONS (3)
  - ERYTHEMA [None]
  - LIP SWELLING [None]
  - PHARYNGEAL OEDEMA [None]
